FAERS Safety Report 9474899 (Version 1)
Quarter: 2013Q3

REPORT INFORMATION
  Report Type: Spontaneous
  Country: US (occurrence: US)
  Receive Date: 20130823
  Receipt Date: 20130823
  Transmission Date: 20140515
  Serious: Yes (Hospitalization, Other)
  Sender: FDA-Public Use
  Company Number: US-ELI_LILLY_AND_COMPANY-US201308005244

PATIENT
  Age: 35 Year
  Sex: Male

DRUGS (16)
  1. HUMALOG LISPRO [Suspect]
     Indication: TYPE 2 DIABETES MELLITUS
     Dosage: 2 GRAMS OF CARBS PER 1 UNIT OF INSULIN
     Dates: start: 2003
  2. HUMALOG LISPRO [Suspect]
     Dosage: 1 GRAM OF CARBS PER 1 UNIT OF INSULIN
     Dates: start: 201308
  3. GABAPENTIN [Concomitant]
  4. MORPHINE [Concomitant]
  5. HYDROCHLOROTHIAZIDE [Concomitant]
  6. IBUPROFEN [Concomitant]
  7. LANTUS [Concomitant]
  8. LIPITOR [Concomitant]
  9. LOSARTAN [Concomitant]
  10. MECLIZINE [Concomitant]
  11. METFORMIN [Concomitant]
  12. METOPROLOL [Concomitant]
  13. NIACIN [Concomitant]
  14. NITROSTAT [Concomitant]
  15. PROVENTIL                               /USA/ [Concomitant]
  16. TIAZAC XC [Concomitant]

REACTIONS (8)
  - Chest pain [Unknown]
  - Hypertension [Unknown]
  - Cardiac disorder [Unknown]
  - Blood glucose increased [Unknown]
  - Skin burning sensation [Unknown]
  - Memory impairment [Unknown]
  - Hepatitis C [Unknown]
  - Back pain [Unknown]
